FAERS Safety Report 5652747-7 (Version None)
Quarter: 2008Q1

REPORT INFORMATION
  Report Type: 
  Country: None (occurrence: None)
  Receive Date: 20080305
  Receipt Date: 20080305
  Transmission Date: 20080703
  Serious: Yes (Other)
  Sender: FDA-Public Use
  Company Number: None

PATIENT
  Sex: Female
  Weight: 61.2356 kg

DRUGS (5)
  1. SERTRALINE HCL [Suspect]
     Indication: DEPRESSION
     Dosage: 150 MG MORNING PO
     Route: 048
     Dates: start: 20061001, end: 20061101
  2. SERTRALINE HCL [Suspect]
     Indication: PANIC ATTACK
     Dosage: 150 MG MORNING PO
     Route: 048
     Dates: start: 20061001, end: 20061101
  3. BUSPARINE [Concomitant]
  4. VITAMIN CAP [Concomitant]
  5. CALCIUM SUPPLEMENT [Concomitant]

REACTIONS (2)
  - DRUG INEFFECTIVE [None]
  - THERAPEUTIC RESPONSE UNEXPECTED WITH DRUG SUBSTITUTION [None]
